FAERS Safety Report 13965593 (Version 2)
Quarter: 2017Q4

REPORT INFORMATION
  Report Type: Spontaneous
  Country: US (occurrence: US)
  Receive Date: 20170913
  Receipt Date: 20171016
  Transmission Date: 20180320
  Serious: Yes (Hospitalization, Other)
  Sender: FDA-Public Use
  Company Number: US-ASTELLAS-2017US036225

PATIENT
  Age: 31 Year
  Sex: Male

DRUGS (2)
  1. PROGRAF [Suspect]
     Active Substance: TACROLIMUS\TACROLIMUS ANHYDROUS
     Indication: SKIN GRAFT
  2. PROGRAF [Suspect]
     Active Substance: TACROLIMUS\TACROLIMUS ANHYDROUS
     Indication: ORGAN TRANSPLANT
     Dosage: 4 MG, OTHER (3 MILLIGRAMS IN THE MORNING AND 1 MILLIGRAM IN THE EVENING)
     Route: 048
     Dates: start: 2011

REACTIONS (4)
  - Transplant rejection [Unknown]
  - Drug hypersensitivity [Unknown]
  - Transplant [Recovering/Resolving]
  - Off label use [Unknown]

NARRATIVE: CASE EVENT DATE: 2011
